FAERS Safety Report 10430051 (Version 1)
Quarter: 2014Q3

REPORT INFORMATION
  Report Type: Spontaneous
  Country: US (occurrence: None)
  Receive Date: 20140902
  Receipt Date: 20140902
  Transmission Date: 20150326
  Serious: Yes (Hospitalization)
  Sender: FDA-Public Use
  Company Number: 2014-US-010578

PATIENT
  Age: 54 Year
  Sex: Female

DRUGS (2)
  1. XYREM [Suspect]
     Active Substance: SODIUM OXYBATE
     Indication: NARCOLEPSY
     Route: 048
     Dates: start: 200908
  2. XYREM [Suspect]
     Active Substance: SODIUM OXYBATE
     Indication: CATAPLEXY
     Route: 048
     Dates: start: 200908

REACTIONS (3)
  - Colitis ischaemic [None]
  - Rectal haemorrhage [None]
  - Dehydration [None]

NARRATIVE: CASE EVENT DATE: 201403
